FAERS Safety Report 12704144 (Version 2)
Quarter: 2016Q3

REPORT INFORMATION
  Report Type: Spontaneous
  Country: US (occurrence: US)
  Receive Date: 20160831
  Receipt Date: 20160902
  Transmission Date: 20161109
  Serious: No
  Sender: FDA-Public Use
  Company Number: US-ELI_LILLY_AND_COMPANY-US201608009447

PATIENT
  Sex: Female

DRUGS (12)
  1. OLANZAPINE. [Suspect]
     Active Substance: OLANZAPINE
     Dosage: 20 MG, PRN
  2. LEXAPRO [Concomitant]
     Active Substance: ESCITALOPRAM OXALATE
  3. COGENTIN [Concomitant]
     Active Substance: BENZTROPINE MESYLATE
  4. OLANZAPINE. [Suspect]
     Active Substance: OLANZAPINE
     Indication: PRODUCT USED FOR UNKNOWN INDICATION
     Dosage: 15 MG, QD
     Route: 065
     Dates: start: 2014
  5. DIAZEPAM. [Concomitant]
     Active Substance: DIAZEPAM
  6. BISOPROLOL [Concomitant]
     Active Substance: BISOPROLOL
  7. NAVANE [Suspect]
     Active Substance: THIOTHIXENE
     Indication: SCHIZOPHRENIA
     Dosage: UNK, UNKNOWN
     Route: 065
  8. ZYPREXA [Suspect]
     Active Substance: OLANZAPINE
     Indication: SCHIZOPHRENIA
     Dosage: 20 MG, UNKNOWN
     Route: 065
     Dates: start: 2000
  9. GABAPENTIN. [Concomitant]
     Active Substance: GABAPENTIN
  10. HCTZ [Concomitant]
     Active Substance: HYDROCHLOROTHIAZIDE
  11. SYNTHROID [Concomitant]
     Active Substance: LEVOTHYROXINE SODIUM
  12. OXYGEN. [Concomitant]
     Active Substance: OXYGEN

REACTIONS (3)
  - Insomnia [Unknown]
  - Dystonia [Unknown]
  - Discomfort [Unknown]
